FAERS Safety Report 6762783-5 (Version None)
Quarter: 2010Q2

REPORT INFORMATION
  Report Type: 
  Country: None (occurrence: None)
  Receive Date: 20100609
  Receipt Date: 20100602
  Transmission Date: 20101027
  Serious: Yes (Death, Hospitalization)
  Sender: FDA-Public Use
  Company Number: B0658388A

PATIENT
  Sex: Female

DRUGS (16)
  1. DEROXAT [Suspect]
     Indication: DRUG USE FOR UNKNOWN INDICATION
     Route: 048
     Dates: end: 20100505
  2. ZOPHREN [Suspect]
     Indication: DRUG USE FOR UNKNOWN INDICATION
     Route: 048
     Dates: end: 20100505
  3. NAVELBINE [Suspect]
     Indication: CHEMOTHERAPY
     Dosage: 40MG CYCLIC
     Route: 042
     Dates: start: 20100329, end: 20100426
  4. FLUOROURACIL [Suspect]
     Indication: CHEMOTHERAPY
     Dosage: 950MG CYCLIC
     Route: 042
     Dates: start: 20100329, end: 20100424
  5. ACTISKENAN [Suspect]
     Indication: DRUG USE FOR UNKNOWN INDICATION
     Route: 048
     Dates: end: 20100505
  6. NEXIUM [Suspect]
     Indication: DRUG USE FOR UNKNOWN INDICATION
     Route: 048
  7. IMOVANE [Suspect]
     Indication: DRUG USE FOR UNKNOWN INDICATION
     Route: 048
     Dates: end: 20100505
  8. PRIMPERAN TAB [Suspect]
     Indication: DRUG USE FOR UNKNOWN INDICATION
     Route: 048
     Dates: end: 20100505
  9. SPASFON [Concomitant]
     Route: 065
  10. DAFALGAN [Concomitant]
     Route: 065
  11. LEXOMIL [Concomitant]
     Route: 065
  12. LOVENOX [Concomitant]
     Route: 065
  13. FORLAX [Concomitant]
     Route: 065
  14. MEDROL [Concomitant]
     Route: 065
  15. GROWTH FACTOR [Concomitant]
     Indication: NEUTROPENIA
     Route: 065
     Dates: start: 20100405
  16. ANTIBIOTIC [Concomitant]
     Indication: URINARY TRACT INFECTION
     Route: 065
     Dates: start: 20100428, end: 20100504

REACTIONS (10)
  - HYPOTENSION [None]
  - HYPOXIA [None]
  - INFLAMMATION [None]
  - INTERSTITIAL LUNG DISEASE [None]
  - NEUTROPHILIA [None]
  - OXYGEN SATURATION DECREASED [None]
  - RASH MACULAR [None]
  - RESPIRATORY DISTRESS [None]
  - SHOCK [None]
  - TACHYCARDIA [None]
